FAERS Safety Report 8008834-1 (Version None)
Quarter: 2011Q4

REPORT INFORMATION
  Report Type: 
  Country: None (occurrence: None)
  Receive Date: 20111221
  Receipt Date: 20111216
  Transmission Date: 20120403
  Serious: Yes (Disabling, Other)
  Sender: FDA-Public Use
  Company Number: AUR-APL-2011-05377

PATIENT
  Age: 72 Year
  Sex: Female
  Weight: 58.05 kg

DRUGS (11)
  1. METOPROLOL TARTRATE [Suspect]
     Indication: HYPERTENSION
     Dosage: 40 MG (20 MG,2 IN 1 D),ORAL
     Route: 048
     Dates: start: 20100101
  2. CELEXA [Suspect]
     Indication: ANXIETY
     Dosage: (120 MG) ; (10 MG)
  3. BENICAR [Suspect]
     Indication: HYPERTENSION
     Dosage: (40 MG,1 D)
     Dates: start: 20100101
  4. PLAVIX [Suspect]
     Indication: ANTICOAGULANT THERAPY
  5. CATAPRES [Suspect]
     Indication: HYPERTENSION
     Dosage: (1 WK),TRANSDERMAL
     Route: 062
     Dates: start: 20100101
  6. LISINOPRIL [Suspect]
     Indication: HYPERTENSION
  7. XANAX [Suspect]
     Indication: ANXIETY
     Dosage: 1 AND 1/4 MG TABLETS (BY SPLITTING 1MG) (1 D),ORAL ; 3/4 TABLET (1 D),ORAL
     Route: 048
     Dates: start: 20100608
  8. ZANTAC [Suspect]
     Indication: BURN OESOPHAGEAL
     Dosage: (600 MG,1 D)
  9. ZANTAC [Suspect]
     Indication: GASTROOESOPHAGEAL REFLUX DISEASE
     Dosage: (600 MG,1 D)
  10. NORVASC [Suspect]
     Indication: HYPERTENSION
     Dosage: (7.5 MG,1 D),ORAL
     Route: 048
     Dates: start: 20100101
  11. ASPIRIN [Concomitant]

REACTIONS (22)
  - ANXIETY [None]
  - WRONG TECHNIQUE IN DRUG USAGE PROCESS [None]
  - CORONARY ARTERY OCCLUSION [None]
  - DRUG HYPERSENSITIVITY [None]
  - HYPERTENSION [None]
  - GASTROINTESTINAL HAEMORRHAGE [None]
  - DRUG DEPENDENCE [None]
  - ACTIVITIES OF DAILY LIVING IMPAIRED [None]
  - DECREASED APPETITE [None]
  - WEIGHT DECREASED [None]
  - ATRIOVENTRICULAR BLOCK [None]
  - GASTROINTESTINAL DISORDER [None]
  - TONGUE DISORDER [None]
  - DRUG INEFFECTIVE [None]
  - TONGUE DRY [None]
  - INAPPROPRIATE SCHEDULE OF DRUG ADMINISTRATION [None]
  - HAIR TEXTURE ABNORMAL [None]
  - MYOCARDIAL INFARCTION [None]
  - DEVICE FAILURE [None]
  - BURN OESOPHAGEAL [None]
  - MUSCLE TIGHTNESS [None]
  - DRY MOUTH [None]
